FAERS Safety Report 12312679 (Version 1)
Quarter: 2016Q2

REPORT INFORMATION
  Report Type: Spontaneous
  Country: IT (occurrence: IT)
  Receive Date: 20160428
  Receipt Date: 20160428
  Transmission Date: 20160815
  Serious: Yes (Hospitalization)
  Sender: FDA-Public Use
  Company Number: IT-ACCORD-039985

PATIENT
  Age: 64 Year
  Sex: Female

DRUGS (6)
  1. TACROLIMUS. [Suspect]
     Active Substance: TACROLIMUS
     Indication: PROPHYLAXIS AGAINST TRANSPLANT REJECTION
     Route: 048
     Dates: start: 20130101, end: 20151118
  2. FOLINA [Concomitant]
     Active Substance: FOLIC ACID
  3. DEURSIL [Concomitant]
     Active Substance: URSODIOL
  4. DIBASE [Concomitant]
     Active Substance: CHOLECALCIFEROL
     Route: 048
  5. ACETYLSALICYLIC ACID [Concomitant]
     Active Substance: ASPIRIN
  6. LACTULOSE. [Concomitant]
     Active Substance: LACTULOSE

REACTIONS (6)
  - Hyperammonaemia [Unknown]
  - Pancytopenia [Unknown]
  - Abdominal pain [Unknown]
  - Confusional state [Unknown]
  - Pyrexia [Unknown]
  - Hypertransaminasaemia [Unknown]

NARRATIVE: CASE EVENT DATE: 20151118
